FAERS Safety Report 11209363 (Version 1)
Quarter: 2015Q2

REPORT INFORMATION
  Report Type: Spontaneous
  Country: US (occurrence: US)
  Receive Date: 20150622
  Receipt Date: 20150622
  Transmission Date: 20150821
  Serious: Yes (Other)
  Sender: FDA-Public Use
  Company Number: US-TARO-2015TAR00515

PATIENT
  Age: 88 Year
  Sex: Male
  Weight: 78.91 kg

DRUGS (7)
  1. UNSPECIFIED STATIN [Concomitant]
     Dosage: UNK
     Dates: end: 201505
  2. WARFARIN SODIUM TABLETS USP 2.5MG [Suspect]
     Active Substance: WARFARIN SODIUM
     Dosage: 2.5 MG, 6X/WEEK
     Route: 048
     Dates: end: 20150519
  3. WARFARIN SODIUM TABLETS USP 2.5MG [Suspect]
     Active Substance: WARFARIN SODIUM
     Dosage: 2.5 MG, 1X/DAY
     Route: 048
     Dates: start: 20150527
  4. WARFARIN SODIUM TABLETS USP 2.5MG [Suspect]
     Active Substance: WARFARIN SODIUM
     Dosage: 2.5 MG, 5X/WEEK
     Route: 048
     Dates: start: 20150520, end: 20150526
  5. WARFARIN SODIUM TABLETS USP 2.5MG [Suspect]
     Active Substance: WARFARIN SODIUM
     Indication: ATRIAL FIBRILLATION
     Dosage: 1.25 MG, 1X/WEEK
     Route: 048
     Dates: end: 20150519
  6. WARFARIN SODIUM TABLETS USP 2.5MG [Suspect]
     Active Substance: WARFARIN SODIUM
     Dosage: 1.25 MG, 2X/WEEK
     Route: 048
     Dates: start: 20150520, end: 20150526
  7. UNSPECIFIED MEDICATION(S) [Concomitant]

REACTIONS (3)
  - Atrial fibrillation [Recovered/Resolved]
  - International normalised ratio decreased [Not Recovered/Not Resolved]
  - Product quality issue [Not Recovered/Not Resolved]

NARRATIVE: CASE EVENT DATE: 20150520
